FAERS Safety Report 9616637 (Version 2)
Quarter: 2013Q4

REPORT INFORMATION
  Report Type: Spontaneous
  Country: US (occurrence: US)
  Receive Date: 20131011
  Receipt Date: 20131011
  Transmission Date: 20140711
  Serious: No
  Sender: FDA-Public Use
  Company Number: US-PURDUE-USA-2013-0100544

PATIENT
  Sex: Female

DRUGS (2)
  1. BUTRANS [Suspect]
     Indication: PAIN
     Dosage: 10 MCG/HR, UNK
     Route: 062
  2. BUTRANS [Suspect]
     Dosage: 20 MCG/HR, UNK
     Route: 062

REACTIONS (10)
  - Application site scar [Unknown]
  - Drug withdrawal syndrome [Unknown]
  - Inappropriate schedule of drug administration [Unknown]
  - Product adhesion issue [Unknown]
  - Malaise [Unknown]
  - Headache [Unknown]
  - Tremor [Unknown]
  - Application site perspiration [Unknown]
  - Muscle spasms [Unknown]
  - Product quality issue [Unknown]
